FAERS Safety Report 5288188-4 (Version None)
Quarter: 2007Q2

REPORT INFORMATION
  Report Type: 
  Country: None (occurrence: None)
  Receive Date: 20070402
  Receipt Date: 20070402
  Transmission Date: 20071010
  Serious: Yes (Hospitalization)
  Sender: FDA-Public Use
  Company Number: None

PATIENT
  Age: 77 Year
  Sex: Male
  Weight: 119.7496 kg

DRUGS (9)
  1. WARFARIN SODIUM [Suspect]
     Indication: ATRIAL FIBRILLATION
     Dosage: 2 MG T, TH, SAT, SUN 4 MG M, W, F PO
     Route: 048
     Dates: start: 19971111, end: 20070330
  2. FUROSEMIDE [Concomitant]
  3. GLYBURIDE [Concomitant]
  4. HYDROCODONE [Concomitant]
  5. NOVOLIN 70/30 [Concomitant]
  6. LISINOPRIL [Concomitant]
  7. METOPROLOL SUCCINATE [Concomitant]
  8. SIMVASTATIN [Concomitant]
  9. VERAPAMIL [Concomitant]

REACTIONS (10)
  - ANTICONVULSANT DRUG LEVEL INCREASED [None]
  - BALANCE DISORDER [None]
  - DECREASED APPETITE [None]
  - DRUG TOXICITY [None]
  - FALL [None]
  - JOINT SPRAIN [None]
  - LOSS OF CONSCIOUSNESS [None]
  - OEDEMA PERIPHERAL [None]
  - PAIN IN EXTREMITY [None]
  - WEIGHT DECREASED [None]
